FAERS Safety Report 6597823-X (Version None)
Quarter: 2010Q1

REPORT INFORMATION
  Report Type: 
  Country: None (occurrence: None)
  Receive Date: 20100216
  Receipt Date: 20071012
  Transmission Date: 20100710
  Serious: Yes (Death)
  Sender: FDA-Public Use
  Company Number: 2010AL000770

PATIENT
  Age: 47 Year
  Sex: Male

DRUGS (4)
  1. PAREGORIC LIQUID USP [Suspect]
  2. HEMINEVRIN [Suspect]
  3. CODEINE SULFATE [Suspect]
  4. ETHANOL [Concomitant]

REACTIONS (6)
  - BLOOD ETHANOL INCREASED [None]
  - DRUG ABUSE [None]
  - DRUG SCREEN POSITIVE [None]
  - DRUG TOXICITY [None]
  - HAEMOLYSIS [None]
  - POTENTIATING DRUG INTERACTION [None]
